FAERS Safety Report 4873452-0 (Version None)
Quarter: 2005Q4

REPORT INFORMATION
  Report Type: 
  Country: None (occurrence: None)
  Receive Date: 20051201
  Receipt Date: 20050818
  Transmission Date: 20060501
  Serious: No
  Sender: FDA-Public Use
  Company Number: 2005PV001362

PATIENT
  Age: 40 Year
  Sex: Female
  Weight: 142.8831 kg

DRUGS (4)
  1. BYETTA [Suspect]
     Indication: DIABETES MELLITUS NON-INSULIN-DEPENDENT
     Dosage: SEE IMAGE
     Route: 058
     Dates: start: 20050701, end: 20050801
  2. BYETTA [Suspect]
     Indication: DIABETES MELLITUS NON-INSULIN-DEPENDENT
     Dosage: SEE IMAGE
     Route: 058
     Dates: start: 20050801
  3. GLUCOPHAGE [Concomitant]
  4. AMARYL [Concomitant]

REACTIONS (8)
  - BLOOD GLUCOSE INCREASED [None]
  - DEPRESSION [None]
  - EARLY SATIETY [None]
  - NAUSEA [None]
  - NERVOUSNESS [None]
  - PSYCHIATRIC SYMPTOM [None]
  - TREATMENT NONCOMPLIANCE [None]
  - WEIGHT DECREASED [None]
